FAERS Safety Report 10272358 (Version 1)
Quarter: 2014Q2

REPORT INFORMATION
  Report Type: Spontaneous
  Country: US (occurrence: None)
  Receive Date: 20140630
  Receipt Date: 20140630
  Transmission Date: 20141212
  Serious: No
  Sender: FDA-Public Use
  Company Number: None

PATIENT
  Age: 79 Year
  Sex: Male

DRUGS (1)
  1. XTANDI 40 MG [Suspect]
     Dates: start: 20140601

REACTIONS (5)
  - Insomnia [None]
  - Fatigue [None]
  - Feeling hot [None]
  - Chest discomfort [None]
  - Decreased appetite [None]
